FAERS Safety Report 9602375 (Version 5)
Quarter: 2014Q2

REPORT INFORMATION
  Report Type: Report from Study
  Country: CA (occurrence: CA)
  Receive Date: 20131007
  Receipt Date: 20140613
  Transmission Date: 20141212
  Serious: Yes (Life-Threatening, Other)
  Sender: FDA-Public Use
  Company Number: PHHY2013CA111591

PATIENT
  Age: 51 Year
  Sex: Female

DRUGS (5)
  1. GILENYA [Suspect]
     Indication: RELAPSING-REMITTING MULTIPLE SCLEROSIS
     Dosage: 0.5 MG, QD
     Route: 048
     Dates: start: 20111229, end: 20131008
  2. LYRICA [Concomitant]
     Dosage: 100 MG, BID
  3. MORPHINE [Concomitant]
     Dosage: 10 MG, PRN
  4. VIT D [Concomitant]
  5. CALCIUM [Concomitant]

REACTIONS (18)
  - Diffuse large B-cell lymphoma stage IV [Unknown]
  - Muscular weakness [Unknown]
  - Intervertebral disc protrusion [Unknown]
  - Back pain [Unknown]
  - Areflexia [Unknown]
  - Lymphadenopathy [Unknown]
  - Musculoskeletal pain [Unknown]
  - Pain in extremity [Recovered/Resolved]
  - Limb discomfort [Not Recovered/Not Resolved]
  - Blood potassium decreased [Unknown]
  - Blood creatinine decreased [Unknown]
  - Blood uric acid increased [Unknown]
  - Red blood cell count decreased [Unknown]
  - Haemoglobin decreased [Unknown]
  - Haematocrit decreased [Unknown]
  - Hypoaesthesia [Not Recovered/Not Resolved]
  - White blood cell count decreased [Unknown]
  - Lymphocyte count decreased [Unknown]
